FAERS Safety Report 10244687 (Version 2)
Quarter: 2014Q2

REPORT INFORMATION
  Report Type: Spontaneous
  Country: RO (occurrence: RO)
  Receive Date: 20140618
  Receipt Date: 20140630
  Transmission Date: 20141212
  Serious: Yes (Hospitalization)
  Sender: FDA-Public Use
  Company Number: RO-GLAXOSMITHKLINE-B1004876A

PATIENT
  Age: 5 Year
  Sex: Female

DRUGS (1)
  1. ZINNAT [Suspect]
     Indication: ACUTE TONSILLITIS
     Dosage: 6ML TWICE PER DAY
     Dates: start: 20140606, end: 20140606

REACTIONS (5)
  - Swelling face [Recovered/Resolved]
  - Rash pruritic [Recovered/Resolved]
  - Vomiting [Recovered/Resolved]
  - Dyspnoea [Recovered/Resolved]
  - Oedema [Recovered/Resolved]
